FAERS Safety Report 12918595 (Version 2)
Quarter: 2017Q1

REPORT INFORMATION
  Report Type: Spontaneous
  Country: US (occurrence: US)
  Receive Date: 20161107
  Receipt Date: 20170103
  Transmission Date: 20170428
  Serious: Yes (Other)
  Sender: FDA-Public Use
  Company Number: US-PFIZER INC-2016514382

PATIENT
  Age: 51 Year
  Sex: Female

DRUGS (2)
  1. PREMARIN [Suspect]
     Active Substance: ESTROGENS, CONJUGATED
     Indication: VULVOVAGINAL DRYNESS
     Dosage: UNK UNK, WEEKLY (3 TIMES A WEEK)
     Route: 067
     Dates: start: 201609
  2. PREMARIN [Suspect]
     Active Substance: ESTROGENS, CONJUGATED
     Indication: VULVOVAGINAL DISCOMFORT
     Dosage: UNK UNK, WEEKLY (4 TIMES A WEEK)
     Route: 067
     Dates: end: 201611

REACTIONS (8)
  - Headache [Not Recovered/Not Resolved]
  - Night sweats [Unknown]
  - Depression [Not Recovered/Not Resolved]
  - Off label use [Unknown]
  - Feeling abnormal [Unknown]
  - Loss of consciousness [Unknown]
  - Migraine [Unknown]
  - Hot flush [Not Recovered/Not Resolved]
